FAERS Safety Report 5582967-1 (Version None)
Quarter: 2008Q1

REPORT INFORMATION
  Report Type: 
  Country: None (occurrence: None)
  Receive Date: 20080107
  Receipt Date: 20071205
  Transmission Date: 20080703
  Serious: Yes (Death, Hospitalization)
  Sender: FDA-Public Use
  Company Number: JP-GENENTECH-252888

PATIENT
  Age: 65 Year
  Sex: Male

DRUGS (5)
  1. MABTHERA [Suspect]
     Indication: NON-HODGKIN'S LYMPHOMA
  2. CYCLOPHOSPHAMIDE [Concomitant]
     Indication: DRUG USE FOR UNKNOWN INDICATION
     Dates: start: 20061024
  3. DOXORUBICIN HCL [Concomitant]
     Indication: DRUG USE FOR UNKNOWN INDICATION
     Dates: start: 20061024
  4. VINCRISTINE [Concomitant]
     Indication: DRUG USE FOR UNKNOWN INDICATION
     Dates: start: 20061024
  5. PREDNISOLONE [Concomitant]
     Indication: DRUG USE FOR UNKNOWN INDICATION
     Dates: start: 20061022

REACTIONS (3)
  - CONTINUOUS HAEMODIAFILTRATION [None]
  - ENCEPHALOPATHY [None]
  - HEPATITIS B [None]
